FAERS Safety Report 23448879 (Version 7)
Quarter: 2025Q3

REPORT INFORMATION
  Report Type: Spontaneous
  Country: AR (occurrence: AR)
  Receive Date: 20240128
  Receipt Date: 20250903
  Transmission Date: 20251021
  Serious: Yes (Other)
  Sender: SANDOZ
  Company Number: AR-002147023-NVSC2022AR242176

PATIENT
  Age: 69 Year
  Sex: Female

DRUGS (30)
  1. DENOSUMAB [Suspect]
     Active Substance: DENOSUMAB
     Indication: Product used for unknown indication
     Dosage: UNK, Q4W
     Route: 065
  2. FULVESTRANT [Suspect]
     Active Substance: FULVESTRANT
     Dosage: UNK, Q4W
     Route: 065
  3. FULVESTRANT [Suspect]
     Active Substance: FULVESTRANT
     Route: 065
     Dates: end: 202309
  4. FULVESTRANT [Suspect]
     Active Substance: FULVESTRANT
     Route: 065
  5. FULVESTRANT [Suspect]
     Active Substance: FULVESTRANT
     Route: 065
     Dates: end: 202412
  6. FULVESTRANT [Suspect]
     Active Substance: FULVESTRANT
     Route: 065
     Dates: end: 202506
  7. FULVESTRANT [Suspect]
     Active Substance: FULVESTRANT
     Route: 065
  8. FULVESTRANT [Suspect]
     Active Substance: FULVESTRANT
     Indication: Breast cancer metastatic
     Route: 065
     Dates: start: 20220718, end: 20250501
  9. FULVESTRANT [Suspect]
     Active Substance: FULVESTRANT
     Route: 065
     Dates: end: 20250501
  10. PIQRAY [Suspect]
     Active Substance: ALPELISIB
     Dosage: 150 MG, QD
     Route: 065
     Dates: start: 20221022
  11. PIQRAY [Suspect]
     Active Substance: ALPELISIB
     Route: 065
  12. PIQRAY [Suspect]
     Active Substance: ALPELISIB
     Route: 048
  13. PIQRAY [Suspect]
     Active Substance: ALPELISIB
     Route: 048
     Dates: end: 20250501
  14. PIQRAY [Suspect]
     Active Substance: ALPELISIB
     Route: 048
     Dates: start: 20220718
  15. PIQRAY [Suspect]
     Active Substance: ALPELISIB
     Indication: Breast cancer metastatic
     Dosage: 300 MG, QD
     Route: 048
     Dates: start: 20220718, end: 20221022
  16. PIQRAY [Suspect]
     Active Substance: ALPELISIB
     Dosage: 300 MG, QD
     Route: 048
     Dates: start: 20220718
  17. PIQRAY [Suspect]
     Active Substance: ALPELISIB
     Dosage: 300 MG, QD
     Route: 065
  18. PIQRAY [Suspect]
     Active Substance: ALPELISIB
     Route: 065
     Dates: end: 202309
  19. PIQRAY [Suspect]
     Active Substance: ALPELISIB
     Route: 065
     Dates: start: 202412
  20. PIQRAY [Suspect]
     Active Substance: ALPELISIB
     Route: 065
     Dates: end: 202506
  21. PIQRAY [Suspect]
     Active Substance: ALPELISIB
     Route: 065
  22. PIQRAY [Suspect]
     Active Substance: ALPELISIB
     Route: 065
  23. PIQRAY [Suspect]
     Active Substance: ALPELISIB
     Route: 065
  24. PIQRAY [Suspect]
     Active Substance: ALPELISIB
     Route: 065
  25. Amoclav duo [Concomitant]
     Indication: Product used for unknown indication
     Route: 065
  26. Clinadol [Concomitant]
     Indication: Product used for unknown indication
     Dosage: UNK, TID
     Route: 065
  27. CLINDAMYCIN HYDROCHLORIDE [Concomitant]
     Active Substance: CLINDAMYCIN HYDROCHLORIDE
     Indication: Product used for unknown indication
     Dosage: UNK UNK, QID
     Route: 065
  28. CLINDAMYCIN [Concomitant]
     Active Substance: CLINDAMYCIN
     Indication: Product used for unknown indication
     Dosage: UNK, QID
     Route: 065
  29. LEVOTHYROXINE [Concomitant]
     Active Substance: LEVOTHYROXINE
     Indication: Product used for unknown indication
     Dosage: 50 MG, QD (STARTED 12 YEARS AGO)
     Route: 065
  30. ACETAMINOPHEN [Concomitant]
     Active Substance: ACETAMINOPHEN
     Indication: Product used for unknown indication
     Route: 065

REACTIONS (41)
  - Angiomyolipoma [Unknown]
  - Osteonecrosis [Unknown]
  - Cataract [Unknown]
  - Oral disorder [Unknown]
  - Infection [Unknown]
  - Peripheral venous disease [Unknown]
  - Pleural thickening [Unknown]
  - Atelectasis [Unknown]
  - Granuloma [Unknown]
  - Synovial cyst [Unknown]
  - Vascular calcification [Unknown]
  - Cyst [Unknown]
  - Intra-abdominal calcification [Unknown]
  - Fluid retention [Unknown]
  - White blood cell count decreased [Unknown]
  - Eosinophil count decreased [Unknown]
  - Blood creatinine decreased [Unknown]
  - Creatinine renal clearance abnormal [Unknown]
  - Blood cholesterol increased [Unknown]
  - Blood homocysteine increased [Unknown]
  - Blood oestrogen increased [Unknown]
  - Blood parathyroid hormone increased [Unknown]
  - Serum serotonin increased [Unknown]
  - Injury [Unknown]
  - Gastrointestinal infection [Unknown]
  - Noninfective gingivitis [Unknown]
  - Gingival recession [Unknown]
  - Gingival bleeding [Unknown]
  - Gingival pain [Unknown]
  - Oral discomfort [Unknown]
  - Exposed bone in jaw [Unknown]
  - Pruritus [Unknown]
  - Dry skin [Unknown]
  - Skin exfoliation [Unknown]
  - Pain [Not Recovered/Not Resolved]
  - Hypersensitivity [Unknown]
  - Blood bilirubin increased [Unknown]
  - Bilirubin conjugated increased [Unknown]
  - Blood bilirubin unconjugated increased [Unknown]
  - Rash [Unknown]
  - Incorrect dose administered [Unknown]

NARRATIVE: CASE EVENT DATE: 20221019
